FAERS Safety Report 19920002 (Version 1)
Quarter: 2021Q4

REPORT INFORMATION
  Report Type: Spontaneous
  Country: CN (occurrence: CN)
  Receive Date: 20211005
  Receipt Date: 20211005
  Transmission Date: 20220303
  Serious: Yes (Hospitalization)
  Sender: FDA-Public Use
  Company Number: CN-BAXTER-2021BAX031107

PATIENT
  Age: 53 Year
  Sex: Female
  Weight: 55 kg

DRUGS (4)
  1. CYCLOPHOSPHAMIDE [Suspect]
     Active Substance: CYCLOPHOSPHAMIDE
     Indication: Breast cancer female
     Dosage: D1, Q14D, ENDOXAN 900 MG + 0.9% SODIUM CHLORIDE 100 ML
     Route: 041
     Dates: start: 20210908, end: 20210908
  2. SODIUM CHLORIDE [Suspect]
     Active Substance: SODIUM CHLORIDE
     Indication: Breast cancer female
     Dosage: D1, Q14D, ENDOXAN 900 MG + 0.9% SODIUM CHLORIDE 100 ML
     Route: 041
     Dates: start: 20210908, end: 20210908
  3. DEXTROSE [Suspect]
     Active Substance: DEXTROSE
     Indication: Breast cancer female
     Dosage: D1, Q14D, PIRARUBICIN HYDROCHLORIDE (90 MG) + 5% GLUCOSE (100 ML)
     Route: 041
     Dates: start: 20210908, end: 20210908
  4. PIRARUBICIN HYDROCHLORIDE [Suspect]
     Active Substance: PIRARUBICIN HYDROCHLORIDE
     Indication: Breast cancer female
     Dosage: D1, Q14D, PIRARUBICIN HYDROCHLORIDE (90 MG) + 5% GLUCOSE (100 ML)
     Route: 041
     Dates: start: 20210908, end: 20210908

REACTIONS (1)
  - Myelosuppression [Recovered/Resolved]

NARRATIVE: CASE EVENT DATE: 20210917
